FAERS Safety Report 8593598-3 (Version None)
Quarter: 2012Q3

REPORT INFORMATION
  Report Type: 
  Country: None (occurrence: None)
  Receive Date: 20120814
  Receipt Date: 20120807
  Transmission Date: 20120928
  Serious: Yes (Hospitalization)
  Sender: FDA-Public Use
  Company Number: JP-ROCHE-1084869

PATIENT
  Sex: Female

DRUGS (15)
  1. ACTEMRA [Suspect]
     Route: 041
     Dates: start: 20100528, end: 20100528
  2. ACTEMRA [Suspect]
     Indication: RHEUMATOID ARTHRITIS
     Route: 041
     Dates: start: 20090626, end: 20091127
  3. ACTEMRA [Suspect]
     Route: 041
     Dates: start: 20100129, end: 20100226
  4. METHOTREXATE [Suspect]
     Indication: RHEUMATOID ARTHRITIS
     Route: 048
  5. MEDROL [Suspect]
     Route: 048
  6. MOBIC [Concomitant]
     Indication: RHEUMATOID ARTHRITIS
     Route: 048
  7. MAGMITT [Concomitant]
     Indication: GASTRITIS
     Route: 048
  8. BROTIZOLAM [Concomitant]
     Indication: INSOMNIA
     Route: 048
  9. MEDROL [Suspect]
     Indication: RHEUMATOID ARTHRITIS
     Route: 048
  10. ISONIAZID [Concomitant]
     Indication: ANTIBIOTIC PROPHYLAXIS
     Route: 048
     Dates: start: 20090529
  11. ALFACALCIDOL [Concomitant]
     Indication: OSTEOPOROSIS
     Route: 048
  12. FAMOTIDINE D [Concomitant]
     Indication: GASTRITIS
     Route: 048
  13. ACTONEL [Concomitant]
     Indication: OSTEOPOROSIS
     Route: 048
  14. ACTEMRA [Suspect]
     Route: 041
     Dates: start: 20100709, end: 20101224
  15. MUCOSTA [Concomitant]
     Indication: GASTRITIS
     Route: 048

REACTIONS (1)
  - SKIN ULCER [None]
